FAERS Safety Report 5282599-9 (Version None)
Quarter: 2007Q1

REPORT INFORMATION
  Report Type: 
  Country: None (occurrence: None)
  Receive Date: 20070326
  Receipt Date: 20070313
  Transmission Date: 20070707
  Serious: Yes (Other)
  Sender: FDA-Public Use
  Company Number: B0462849A

PATIENT
  Sex: 0

DRUGS (4)
  1. PAXIL [Suspect]
     Dosage: TRANSPLACENTARY
     Route: 064
  2. RISPERIDONE [Suspect]
     Dosage: TRANSPLACENTARY
     Route: 064
  3. CARBAMAZEPINE [Suspect]
     Dosage: TRANSPLACENTARY
     Route: 064
  4. FLUPENTHIXOL (FORMULATION UNKNOWN) (FLUPENTHIXOL) [Suspect]
     Dosage: 50 MG / EVERY TWO WEEKS / TRANSPLAC
     Route: 064

REACTIONS (6)
  - CONGENITAL CEREBRAL CYST [None]
  - DRUG EXPOSURE DURING PREGNANCY [None]
  - HAEMORRHAGIC CYST [None]
  - HEAD CIRCUMFERENCE ABNORMAL [None]
  - NEONATAL DISORDER [None]
  - PREMATURE BABY [None]
